FAERS Safety Report 4408741-7 (Version None)
Quarter: 2004Q3

REPORT INFORMATION
  Report Type: 
  Country: None (occurrence: None)
  Receive Date: 20040727
  Receipt Date: 20040716
  Transmission Date: 20050211
  Serious: Yes (Other)
  Sender: FDA-Public Use
  Company Number: PHEH2004US07697

PATIENT
  Age: 61 Year
  Sex: Male

DRUGS (3)
  1. LOTREL [Suspect]
     Indication: HYPERTENSION
     Dosage: UNK, QD
     Dates: start: 20020101
  2. CELEBREX [Suspect]
     Indication: ARTHRITIS
     Dosage: 100 MG BID/ PRN
     Dates: start: 19991201
  3. DIAZEPAM [Concomitant]

REACTIONS (6)
  - EAR ABRASION [None]
  - HAEMATURIA [None]
  - HYDRONEPHROSIS [None]
  - OTITIS EXTERNA [None]
  - RENAL CYST [None]
  - VASCULAR TEST ABNORMAL [None]
